FAERS Safety Report 8602636-0 (Version None)
Quarter: 2012Q3

REPORT INFORMATION
  Report Type: 
  Country: None (occurrence: None)
  Receive Date: 20120817
  Receipt Date: 19900423
  Transmission Date: 20120928
  Serious: Yes (Other)
  Sender: FDA-Public Use
  Company Number: US-ROCHE-1100507

PATIENT
  Age: 51 Year
  Sex: Male

DRUGS (4)
  1. ASPIRIN [Concomitant]
     Route: 048
  2. ACTIVASE [Suspect]
     Indication: ACUTE MYOCARDIAL INFARCTION
  3. HEPARIN [Concomitant]
     Dosage: 1500 UNITS PER HOUR
     Route: 042
  4. NITROGLYCERIN [Concomitant]
     Dosage: 1 INCH

REACTIONS (4)
  - CARDIAC VENTRICULAR DISORDER [None]
  - HYPOTENSION [None]
  - ARRHYTHMIA [None]
  - RALES [None]
